FAERS Safety Report 8888793 (Version 1)
Quarter: 2012Q4

REPORT INFORMATION
  Report Type: 
  Country: DE (occurrence: DE)
  Receive Date: 20121106
  Receipt Date: 20121106
  Transmission Date: 20130627
  Serious: Yes (Hospitalization, Congenital Anomaly, Other)
  Sender: FDA-Public Use
  Company Number: DE-TEVA-366244GER

PATIENT
  Age: 0 Year
  Sex: Female
  Weight: 2.63 kg

DRUGS (2)
  1. MORPHINE [Suspect]
     Route: 064
  2. OXYCODONE [Suspect]
     Route: 064

REACTIONS (3)
  - Atrial septal defect [Unknown]
  - Drug withdrawal syndrome neonatal [Recovered/Resolved]
  - Small for dates baby [Unknown]
